FAERS Safety Report 17109275 (Version 1)
Quarter: 2019Q4

REPORT INFORMATION
  Report Type: Spontaneous
  Country: US (occurrence: US)
  Receive Date: 20191204
  Receipt Date: 20191204
  Transmission Date: 20200122
  Serious: No
  Sender: FDA-Public Use
  Company Number: NVSC2019US053530

PATIENT
  Sex: Female

DRUGS (1)
  1. GILENYA [Suspect]
     Active Substance: FINGOLIMOD HYDROCHLORIDE
     Indication: MULTIPLE SCLEROSIS
     Dosage: 0.5 MG, ONE CAP EVERY MORNING FOR TWO DAYS IN A ROW THEN SKIP THIRD DAY AND REPEAT
     Route: 048
     Dates: start: 20180206

REACTIONS (2)
  - Inappropriate schedule of product administration [Unknown]
  - Lymphocyte count decreased [Recovered/Resolved with Sequelae]
